FAERS Safety Report 7626066-3 (Version None)
Quarter: 2011Q3

REPORT INFORMATION
  Report Type: 
  Country: None (occurrence: None)
  Receive Date: 20110713
  Receipt Date: 20110630
  Transmission Date: 20111222
  Serious: Yes (Other)
  Sender: FDA-Public Use
  Company Number: 2011P1007511

PATIENT
  Age: 78 Year
  Sex: Female
  Weight: 72.5755 kg

DRUGS (7)
  1. FLUOXETINE [Concomitant]
  2. LIPITOR [Concomitant]
  3. ASPIRIN [Concomitant]
  4. HYDROCORTISONE [Suspect]
     Indication: ADDISON'S DISEASE
     Dosage: 10 MG; BID; PO
     Route: 048
     Dates: start: 20101101
  5. METOPROLOL TARTRATE [Concomitant]
  6. DIOVAN HCT [Concomitant]
  7. CORTEF [Suspect]
     Indication: ADDISON'S DISEASE
     Dosage: 10 MG; BID; PO
     Route: 048
     Dates: end: 20101101

REACTIONS (2)
  - MALAISE [None]
  - FOOT FRACTURE [None]
